FAERS Safety Report 4471655-0 (Version None)
Quarter: 2004Q4

REPORT INFORMATION
  Report Type: 
  Country: None (occurrence: None)
  Receive Date: 20041012
  Receipt Date: 20041004
  Transmission Date: 20050328
  Serious: Yes (Life-Threatening, Hospitalization)
  Sender: FDA-Public Use
  Company Number: BR-MERCK-0410BRA00180

PATIENT
  Age: 58 Year
  Sex: Male

DRUGS (4)
  1. ATENOLOL [Concomitant]
     Indication: GLAUCOMA
     Route: 048
  2. DORZOLAMIDE HYDROCHLORIDE AND TIMOLOL MALEATE [Concomitant]
     Indication: GLAUCOMA
     Route: 065
  3. IRBESARTAN [Concomitant]
     Indication: GLAUCOMA
     Route: 065
  4. VIOXX [Suspect]
     Indication: POLYARTHRITIS
     Route: 048
     Dates: start: 20040114, end: 20040930

REACTIONS (2)
  - HYPERTENSIVE CRISIS [None]
  - VENTRICULAR HYPERTROPHY [None]
